FAERS Safety Report 7658631-1 (Version None)
Quarter: 2011Q3

REPORT INFORMATION
  Report Type: 
  Country: None (occurrence: None)
  Receive Date: 20110805
  Receipt Date: 20110802
  Transmission Date: 20111222
  Serious: Yes (Other)
  Sender: FDA-Public Use
  Company Number: AU-BRISTOL-MYERS SQUIBB COMPANY-15900152

PATIENT
  Age: 55 Year
  Sex: Male
  Weight: 104 kg

DRUGS (5)
  1. PLAQUENIL [Concomitant]
  2. METHOTREXATE [Concomitant]
  3. ARAVA [Concomitant]
  4. INSULIN [Concomitant]
  5. ORENCIA [Suspect]
     Indication: RHEUMATOID ARTHRITIS
     Dosage: NO OF INF:2
     Dates: start: 20110215

REACTIONS (7)
  - DIZZINESS [None]
  - PARAESTHESIA ORAL [None]
  - HYPERTENSION [None]
  - HYPOAESTHESIA [None]
  - HEADACHE [None]
  - PRESYNCOPE [None]
  - HEAD DISCOMFORT [None]
